FAERS Safety Report 20546195 (Version 1)
Quarter: 2022Q1

REPORT INFORMATION
  Report Type: Spontaneous
  Country: US (occurrence: US)
  Receive Date: 20220303
  Receipt Date: 20220303
  Transmission Date: 20220424
  Serious: Yes (Other)
  Sender: FDA-Public Use
  Company Number: US-GLAXOSMITHKLINE-US2022GSK037680

PATIENT
  Sex: Female

DRUGS (4)
  1. ZANTAC [Suspect]
     Active Substance: RANITIDINE HYDROCHLORIDE
     Indication: Surgery
     Dosage: 150 MG, 3-4X/DAY
     Route: 065
     Dates: start: 199407, end: 201902
  2. ZANTAC [Suspect]
     Active Substance: RANITIDINE HYDROCHLORIDE
     Indication: Surgery
     Dosage: 150 MG,3-4X/DAY
     Route: 065
     Dates: start: 199407, end: 201902
  3. ZANTAC [Suspect]
     Active Substance: RANITIDINE HYDROCHLORIDE
     Indication: Surgery
     Dosage: 150 MG, 3-4X/DAY
     Route: 065
     Dates: start: 199407, end: 201902
  4. RANITIDINE [Suspect]
     Active Substance: RANITIDINE
     Indication: Surgery
     Dosage: 150 MG, 3-4X/DAY
     Route: 065
     Dates: start: 199407, end: 201902

REACTIONS (1)
  - Lung neoplasm malignant [Unknown]
